FAERS Safety Report 8396108-9 (Version None)
Quarter: 2012Q2

REPORT INFORMATION
  Report Type: 
  Country: None (occurrence: None)
  Receive Date: 20120530
  Receipt Date: 20120523
  Transmission Date: 20120825
  Serious: Yes (Disabling, Other)
  Sender: FDA-Public Use
  Company Number: DE-PFIZER INC-2012096779

PATIENT
  Age: 28 Year
  Sex: Female
  Weight: 65.8 kg

DRUGS (3)
  1. ACICLOVIR [Concomitant]
     Indication: HERPES VIRUS INFECTION
     Dosage: UNK
     Route: 051
     Dates: start: 20120403, end: 20120411
  2. ZYVOX [Suspect]
     Indication: SEPSIS
     Dosage: 600 MG/DAY
     Route: 042
     Dates: start: 20120403, end: 20120412
  3. CLINDAMYCIN [Concomitant]
     Indication: SEPSIS
     Dosage: UNK
     Dates: start: 20120328, end: 20120403

REACTIONS (3)
  - CHOLECYSTITIS ACUTE [None]
  - AMAUROSIS [None]
  - CARPAL TUNNEL SYNDROME [None]
